FAERS Safety Report 16942047 (Version 1)
Quarter: 2019Q4

REPORT INFORMATION
  Report Type: Spontaneous
  Country: US (occurrence: US)
  Receive Date: 20191021
  Receipt Date: 20191021
  Transmission Date: 20200122
  Serious: Yes (Other)
  Sender: FDA-Public Use
  Company Number: US-MEDEXUS PHARMA, INC.-2019MED00231

PATIENT
  Age: 67 Year
  Sex: Female

DRUGS (4)
  1. RASUVO [Suspect]
     Active Substance: METHOTREXATE SODIUM
     Dosage: 15 MG, 1X/WEEK INJECTED INTO THIGH
     Dates: start: 2019, end: 201908
  2. RASUVO [Suspect]
     Active Substance: METHOTREXATE SODIUM
     Dosage: 15 MG, 2X/MONTH (ONCE EVERY OTHER WEEK) INJECTED INTO THIGH
     Dates: start: 2019
  3. RASUVO [Suspect]
     Active Substance: METHOTREXATE SODIUM
     Dosage: 15 MG, 1X/WEEK INJECTED INTO THIGH
     Dates: start: 201909, end: 2019
  4. RASUVO [Suspect]
     Active Substance: METHOTREXATE SODIUM
     Indication: RHEUMATOID ARTHRITIS
     Dosage: 15 MG, 1X/WEEK INJECTED INTO THIGH
     Dates: end: 2019

REACTIONS (6)
  - Hysterectomy [Recovered/Resolved]
  - Device malfunction [Recovered/Resolved]
  - Nasopharyngitis [Recovered/Resolved]
  - Product dose omission [Unknown]
  - Foot operation [Recovered/Resolved]
  - Off label use [Not Recovered/Not Resolved]

NARRATIVE: CASE EVENT DATE: 2019
